FAERS Safety Report 4644760-3 (Version None)
Quarter: 2005Q2

REPORT INFORMATION
  Report Type: 
  Country: None (occurrence: None)
  Receive Date: 20050426
  Receipt Date: 20050310
  Transmission Date: 20051028
  Serious: Yes (Hospitalization)
  Sender: FDA-Public Use
  Company Number: 200510776JP

PATIENT
  Age: 63 Year
  Sex: Male

DRUGS (11)
  1. KETEK [Suspect]
     Indication: BRONCHITIS
     Route: 048
     Dates: start: 20050303, end: 20050303
  2. AMARYL [Suspect]
     Indication: DIABETES MELLITUS
     Route: 048
     Dates: start: 20050121
  3. TAKEPRON [Concomitant]
     Indication: REFLUX OESOPHAGITIS
     Route: 048
     Dates: start: 20010227
  4. LIPITOR [Concomitant]
     Indication: HYPERLIPIDAEMIA
     Route: 048
     Dates: start: 20041015
  5. URSO 250 [Concomitant]
     Indication: HEPATIC FUNCTION ABNORMAL
     Route: 048
     Dates: start: 20021029
  6. DORNER [Concomitant]
     Route: 048
     Dates: start: 20050121
  7. CLOTAM [Concomitant]
     Indication: BRONCHITIS
     Route: 048
     Dates: start: 20050303, end: 20050303
  8. BROAMI [Concomitant]
     Indication: BRONCHITIS
     Route: 048
     Dates: start: 20050303, end: 20050303
  9. CELESTAMINE TAB [Concomitant]
     Indication: BRONCHITIS
     Dosage: DOSE: 3TBLTS
     Route: 048
     Dates: start: 20050303, end: 20050303
  10. BASEN [Concomitant]
     Indication: DIABETES MELLITUS
     Route: 048
     Dates: start: 20041001
  11. ASTOMIN [Concomitant]
     Indication: BRONCHITIS
     Route: 048
     Dates: start: 20050303, end: 20050303

REACTIONS (18)
  - ABNORMAL BEHAVIOUR [None]
  - ASPARTATE AMINOTRANSFERASE INCREASED [None]
  - ASTHENIA [None]
  - BLOOD CREATINE PHOSPHOKINASE INCREASED [None]
  - BLOOD GLUCOSE INCREASED [None]
  - BLOOD PRESSURE SYSTOLIC INCREASED [None]
  - C-REACTIVE PROTEIN INCREASED [None]
  - COUGH [None]
  - DEHYDRATION [None]
  - DEPRESSED LEVEL OF CONSCIOUSNESS [None]
  - GAIT DISTURBANCE [None]
  - HYPOGLYCAEMIA [None]
  - INFECTION [None]
  - LOSS OF CONSCIOUSNESS [None]
  - LUNG DISORDER [None]
  - PNEUMONIA [None]
  - RESPIRATORY DISORDER [None]
  - STRIDOR [None]
